FAERS Safety Report 21749395 (Version 1)
Quarter: 2022Q4

REPORT INFORMATION
  Report Type: Report from Study
  Country: ES (occurrence: PA)
  Receive Date: 20221219
  Receipt Date: 20221219
  Transmission Date: 20230113
  Serious: Yes (Other)
  Sender: FDA-Public Use
  Company Number: ES-GSK-PA2022GSK183682

PATIENT

DRUGS (7)
  1. ZIDOVUDINE [Suspect]
     Active Substance: ZIDOVUDINE
     Indication: Perinatal HIV infection
     Dosage: UNK
  2. LAMIVUDINE [Suspect]
     Active Substance: LAMIVUDINE
     Indication: Perinatal HIV infection
     Dosage: UNK
  3. LOPINAVIR\RITONAVIR [Suspect]
     Active Substance: LOPINAVIR\RITONAVIR
     Indication: Perinatal HIV infection
     Dosage: UNK
  4. DIDANOSINE [Suspect]
     Active Substance: DIDANOSINE
     Indication: Perinatal HIV infection
     Dosage: UNK
  5. STAVUDINE [Suspect]
     Active Substance: STAVUDINE
     Indication: Perinatal HIV infection
     Dosage: UNK
  6. EFAVIRENZ [Suspect]
     Active Substance: EFAVIRENZ
     Indication: Perinatal HIV infection
     Dosage: UNK
  7. RALTEGRAVIR [Suspect]
     Active Substance: RALTEGRAVIR
     Indication: Perinatal HIV infection
     Dosage: UNK

REACTIONS (5)
  - Pathogen resistance [Unknown]
  - Viral mutation identified [Unknown]
  - HIV viraemia [Unknown]
  - Virologic failure [Unknown]
  - Treatment failure [Unknown]
